FAERS Safety Report 5497499-9 (Version None)
Quarter: 2007Q4

REPORT INFORMATION
  Report Type: 
  Country: None (occurrence: None)
  Receive Date: 20071025
  Receipt Date: 20061127
  Transmission Date: 20080405
  Serious: No
  Sender: FDA-Public Use
  Company Number: A0628715A

PATIENT
  Age: 49 Year
  Sex: Male

DRUGS (12)
  1. ADVAIR DISKUS 100/50 [Suspect]
     Indication: CHRONIC OBSTRUCTIVE PULMONARY DISEASE
     Dosage: 1PUFF TWICE PER DAY
     Route: 055
  2. LANTUS [Concomitant]
  3. NOVOLOG [Concomitant]
  4. METFORMIN [Concomitant]
  5. NEBULIZER [Concomitant]
  6. SPIRIVA [Concomitant]
  7. FUROSEMIDE [Concomitant]
  8. POTASSIUM CHLORIDE [Concomitant]
  9. ASPIRIN [Concomitant]
  10. AMILORIDE HYDROCHLORIDE [Concomitant]
  11. SPIRONOLACTONE [Concomitant]
  12. VYTORIN [Concomitant]

REACTIONS (1)
  - HYPERGLYCAEMIA [None]
